FAERS Safety Report 4388294-2 (Version None)
Quarter: 2004Q2

REPORT INFORMATION
  Report Type: 
  Country: None (occurrence: None)
  Receive Date: 20040625
  Receipt Date: 20040614
  Transmission Date: 20050107
  Serious: Yes (Hospitalization)
  Sender: FDA-Public Use
  Company Number: A04200400546

PATIENT
  Age: 84 Year
  Sex: Male

DRUGS (2)
  1. PLAVIX [Suspect]
     Indication: HEART VALVE OPERATION
     Dosage: 75 MG OD ORAL
     Route: 048
     Dates: start: 20000101, end: 20040101
  2. FRAGMIN P FORTE (DALTEPARIN) [Concomitant]

REACTIONS (2)
  - AMNESIA [None]
  - MUSCLE CRAMP [None]
